FAERS Safety Report 6120198-7 (Version None)
Quarter: 2009Q1

REPORT INFORMATION
  Report Type: 
  Country: None (occurrence: None)
  Receive Date: 20090316
  Receipt Date: 20090311
  Transmission Date: 20090719
  Serious: No
  Sender: FDA-Public Use
  Company Number: US-ABBOTT-09P-163-0562452-00

PATIENT
  Sex: Female
  Weight: 77.18 kg

DRUGS (7)
  1. TRILIPIX [Suspect]
     Indication: HIGH DENSITY LIPOPROTEIN DECREASED
     Route: 048
     Dates: start: 20090126, end: 20090308
  2. SYNTHROID [Concomitant]
     Indication: HYPERTHYROIDISM
     Route: 048
     Dates: start: 20080101
  3. AVAPRO [Concomitant]
     Indication: HYPERTENSION
  4. ASPIRIN [Concomitant]
     Indication: ANTICOAGULANT THERAPY
     Route: 048
  5. CRESTOR [Concomitant]
     Indication: BLOOD CHOLESTEROL INCREASED
     Route: 048
  6. NIASPAN [Concomitant]
     Indication: BLOOD CHOLESTEROL INCREASED
     Route: 048
  7. MULTI-VITAMIN [Concomitant]
     Indication: MEDICAL DIET
     Dosage: UNKNOWN
     Route: 048

REACTIONS (5)
  - DIZZINESS [None]
  - HYPERHIDROSIS [None]
  - NAUSEA [None]
  - PRURITUS [None]
  - RASH [None]
